FAERS Safety Report 23184706 (Version 2)
Quarter: 2023Q4

REPORT INFORMATION
  Report Type: Spontaneous
  Country: IT (occurrence: IT)
  Receive Date: 20231115
  Receipt Date: 20231212
  Transmission Date: 20240110
  Serious: Yes (Other)
  Sender: FDA-Public Use
  Company Number: IT-AUROBINDO-AUR-APL-2023-062800

PATIENT
  Age: 46 Year
  Sex: Female
  Weight: 42 kg

DRUGS (4)
  1. LACTULOSE [Suspect]
     Active Substance: LACTULOSE
     Indication: Constipation
     Dosage: UNK
     Route: 048
     Dates: start: 2021
  2. LACTULOSE [Suspect]
     Active Substance: LACTULOSE
     Indication: Osteoporosis
  3. METHYLPREDNISOLONE [Concomitant]
     Active Substance: METHYLPREDNISOLONE
     Indication: Product used for unknown indication
     Dosage: 8 MILLIGRAM
     Route: 048
  4. OMEPRAZOLE SODIUM [Concomitant]
     Active Substance: OMEPRAZOLE SODIUM
     Indication: Product used for unknown indication
     Dosage: 20 MILLIGRAM
     Route: 065

REACTIONS (6)
  - Gastrointestinal oedema [Unknown]
  - Dyspepsia [Unknown]
  - Abdominal distension [Unknown]
  - Reaction to flavouring [Unknown]
  - Product substitution issue [Unknown]
  - Product colour issue [Unknown]
